FAERS Safety Report 9964304 (Version 3)
Quarter: 2014Q3

REPORT INFORMATION
  Report Type: Spontaneous
  Country: JP (occurrence: JP)
  Receive Date: 20140305
  Receipt Date: 20140703
  Transmission Date: 20150326
  Serious: Yes (Hospitalization)
  Sender: FDA-Public Use
  Company Number: JP-009507513-1403JPN000455

PATIENT
  Age: 48 Year
  Sex: Male
  Weight: 58 kg

DRUGS (6)
  1. JANUVIA [Suspect]
     Active Substance: SITAGLIPTIN PHOSPHATE
     Dosage: 50 MG, QD
     Route: 048
     Dates: start: 20140207
  2. SPIRONOLACTONE. [Suspect]
     Active Substance: SPIRONOLACTONE
     Indication: HEPATIC CIRRHOSIS
     Dosage: 25 MG, QD
     Route: 048
     Dates: start: 20140121
  3. FUROSEMIDE. [Suspect]
     Active Substance: FUROSEMIDE
     Indication: HEPATIC CIRRHOSIS
     Dosage: 20 MG, QD
     Route: 048
     Dates: start: 20140121
  4. JANUVIA [Suspect]
     Active Substance: SITAGLIPTIN PHOSPHATE
     Indication: DIABETES MELLITUS
     Dosage: 2650 MG QD
     Route: 048
     Dates: start: 20140226, end: 20140226
  5. LIVACT [Concomitant]
     Indication: HEPATIC CIRRHOSIS
     Dosage: 4.15 G, TID
     Route: 048
     Dates: start: 20130509
  6. JANUVIA [Suspect]
     Active Substance: SITAGLIPTIN PHOSPHATE
     Indication: DIABETES MELLITUS
     Dosage: 25 MG, QD
     Dates: start: 20130513, end: 20140206

REACTIONS (6)
  - Altered state of consciousness [Recovered/Resolved]
  - Electrolyte imbalance [Recovered/Resolved]
  - Dehydration [Unknown]
  - Blood ketone body increased [Unknown]
  - Overdose [Unknown]
  - Vomiting [Unknown]

NARRATIVE: CASE EVENT DATE: 2014
